FAERS Safety Report 4760350-6 (Version None)
Quarter: 2005Q3

REPORT INFORMATION
  Report Type: 
  Country: None (occurrence: None)
  Receive Date: 20050902
  Receipt Date: 20050224
  Transmission Date: 20060218
  Serious: Yes (Hospitalization)
  Sender: FDA-Public Use
  Company Number: PHHO2005JP03473

PATIENT
  Age: 80 Year
  Sex: Female
  Weight: 48 kg

DRUGS (4)
  1. DIOVAN [Suspect]
     Indication: HYPERTENSION
     Dosage: 80 MG, QD
     Route: 048
     Dates: start: 20030325
  2. ISOSORBIDE MONONITRATE [Concomitant]
     Indication: ANGINA PECTORIS
  3. ASPIRIN [Concomitant]
     Indication: ANGINA PECTORIS
  4. PANALDINE [Concomitant]
     Indication: ANGINA PECTORIS

REACTIONS (7)
  - ANGINA UNSTABLE [None]
  - ARTERIAL STENOSIS [None]
  - BACK PAIN [None]
  - CHEST PAIN [None]
  - CORONARY ANGIOPLASTY [None]
  - DYSPNOEA [None]
  - ELECTROCARDIOGRAM ST SEGMENT DEPRESSION [None]
